FAERS Safety Report 7419105-6 (Version None)
Quarter: 2011Q2

REPORT INFORMATION
  Report Type: 
  Country: None (occurrence: None)
  Receive Date: 20110415
  Receipt Date: 20110217
  Transmission Date: 20111010
  Serious: Yes (Hospitalization, Other)
  Sender: FDA-Public Use
  Company Number: US-BAYER-201035066NA

PATIENT
  Age: 29 Year
  Sex: Female

DRUGS (2)
  1. YAZ [Suspect]
     Indication: PRODUCT USED FOR UNKNOWN INDICATION
     Dosage: UNK UNK, UNK
     Route: 048
     Dates: start: 20080501, end: 20080910
  2. EFFEXOR XR [Concomitant]
     Dosage: 150 MG, QD

REACTIONS (4)
  - GALLBLADDER DISORDER [None]
  - ABDOMINAL PAIN UPPER [None]
  - POST CHOLECYSTECTOMY SYNDROME [None]
  - CHOLELITHIASIS [None]
